FAERS Safety Report 8193114-4 (Version None)
Quarter: 2012Q1

REPORT INFORMATION
  Report Type: 
  Country: None (occurrence: None)
  Receive Date: 20120308
  Receipt Date: 20120308
  Transmission Date: 20120608
  Serious: Yes (Hospitalization)
  Sender: FDA-Public Use
  Company Number: None

PATIENT
  Age: 49 Year
  Sex: Female
  Weight: 95 kg

DRUGS (1)
  1. HEPARIN SODIUM [Suspect]
     Indication: EMBOLISM VENOUS
     Dosage: HEPARIN INFUSION
     Route: 041
     Dates: start: 20120226, end: 20120302

REACTIONS (2)
  - ANTICOAGULATION DRUG LEVEL ABOVE THERAPEUTIC [None]
  - MUSCLE HAEMORRHAGE [None]
